FAERS Safety Report 7347145-4 (Version None)
Quarter: 2011Q1

REPORT INFORMATION
  Report Type: 
  Country: None (occurrence: None)
  Receive Date: 20110303
  Receipt Date: 20110224
  Transmission Date: 20110831
  Serious: Yes (Hospitalization)
  Sender: FDA-Public Use
  Company Number: UTC-005358

PATIENT
  Age: 71 Year
  Sex: Female
  Weight: 62.7 kg

DRUGS (2)
  1. REMODULIN [Suspect]
     Indication: PULMONARY ARTERIAL HYPERTENSION
     Dosage: 33.12 UG/KG (0.023 UG/KG, 1 IN 1 MIN), SUBCUTANEOUS
     Route: 058
     Dates: start: 20100922
  2. TRACLEER [Concomitant]

REACTIONS (2)
  - FALL [None]
  - INFUSION SITE INFECTION [None]
